FAERS Safety Report 5027738-X (Version None)
Quarter: 2006Q2

REPORT INFORMATION
  Report Type: 
  Country: None (occurrence: None)
  Receive Date: 20060616
  Receipt Date: 20060607
  Transmission Date: 20061013
  Serious: Yes (Other)
  Sender: FDA-Public Use
  Company Number: PHNU2006DE02195

PATIENT
  Sex: Male
  Weight: 100 kg

DRUGS (2)
  1. EZETROL [Concomitant]
  2. LOCOL [Suspect]
     Indication: HYPERCHOLESTEROLAEMIA
     Dosage: 20 MG, QD
     Route: 048
     Dates: start: 20051001, end: 20060301

REACTIONS (1)
  - HAEMATURIA [None]
